FAERS Safety Report 4932881-7 (Version None)
Quarter: 2006Q1

REPORT INFORMATION
  Report Type: 
  Country: None (occurrence: None)
  Receive Date: 20060302
  Receipt Date: 20060302
  Transmission Date: 20060701
  Serious: Yes (Hospitalization)
  Sender: FDA-Public Use
  Company Number: None

PATIENT
  Age: 72 Year
  Sex: Male

DRUGS (2)
  1. ZOLPIDEM   10 [Suspect]
     Indication: SOMNOLENCE
     Dosage: 10 MG  AT BEDTIME  PO
     Route: 048
  2. MIRTAZAPINE [Suspect]
     Indication: ANXIETY
     Dosage: 15 MG   AT BEDTIME  PO
     Route: 048

REACTIONS (3)
  - DIZZINESS [None]
  - FALL [None]
  - PELVIC FRACTURE [None]
